FAERS Safety Report 25030958 (Version 1)
Quarter: 2025Q1

REPORT INFORMATION
  Report Type: Spontaneous
  Country: US (occurrence: US)
  Receive Date: 20250303
  Receipt Date: 20250303
  Transmission Date: 20250409
  Serious: No
  Sender: PADAGIS
  Company Number: US-PADAGIS-2025PAD00240

PATIENT

DRUGS (3)
  1. PERMETHRIN [Suspect]
     Active Substance: PERMETHRIN
     Indication: Acarodermatitis
     Route: 065
     Dates: start: 20240820
  2. PERMETHRIN [Suspect]
     Active Substance: PERMETHRIN
     Route: 065
     Dates: start: 20240827, end: 20240827
  3. LOSARTAN [Concomitant]
     Active Substance: LOSARTAN
     Indication: Product used for unknown indication
     Route: 065

REACTIONS (7)
  - Fatigue [Not Recovered/Not Resolved]
  - Eating disorder [Not Recovered/Not Resolved]
  - Asthenia [Not Recovered/Not Resolved]
  - Nausea [Not Recovered/Not Resolved]
  - Dizziness [Not Recovered/Not Resolved]
  - Inappropriate schedule of product administration [Unknown]
  - Product prescribing error [Unknown]

NARRATIVE: CASE EVENT DATE: 20250828
